FAERS Safety Report 23409809 (Version 1)
Quarter: 2024Q1

REPORT INFORMATION
  Report Type: Spontaneous
  Country: US (occurrence: US)
  Receive Date: 20240117
  Receipt Date: 20240117
  Transmission Date: 20240409
  Serious: No
  Sender: FDA-Public Use
  Company Number: US-PFIZER INC-PV202300025971

PATIENT
  Age: 71 Year
  Sex: Female

DRUGS (2)
  1. EUCRISA [Suspect]
     Active Substance: CRISABOROLE
     Indication: Rash
     Dosage: 1 DF, DAILY (APPLY TO ERUPTION ON FACE EVERY DAY AS DIRECTED BY PHYSICIAN)
     Route: 061
  2. EUCRISA [Suspect]
     Active Substance: CRISABOROLE
     Dosage: 1 DF, 1X/DAY (APPLY TO ERUPTION ON FACE EVERY DAY AS DIRECTED BY PHYSICIAN)
     Route: 061

REACTIONS (2)
  - Off label use [Unknown]
  - Illness [Unknown]
